FAERS Safety Report 19025589 (Version 2)
Quarter: 2021Q3

REPORT INFORMATION
  Report Type: Report from Study
  Country: BR (occurrence: BR)
  Receive Date: 20210318
  Receipt Date: 20210716
  Transmission Date: 20211014
  Serious: Yes (Life-Threatening, Hospitalization, Other)
  Sender: FDA-Public Use
  Company Number: BR-TAKEDA-BR202025109

PATIENT
  Age: 28 Year
  Sex: Male
  Weight: 73 kg

DRUGS (4)
  1. HEMO?8R [Suspect]
     Active Substance: ANTIHEMOPHILIC FACTOR, HUMAN RECOMBINANT
     Dosage: 2000 INTERNATIONAL UNIT, 2/WEEK
     Route: 065
  2. HEMO?8R [Suspect]
     Active Substance: ANTIHEMOPHILIC FACTOR, HUMAN RECOMBINANT
     Indication: FACTOR VIII DEFICIENCY
     Dosage: UNK UNK, 3/WEEK
     Route: 065
  3. HEMO?8R [Suspect]
     Active Substance: ANTIHEMOPHILIC FACTOR, HUMAN RECOMBINANT
     Dosage: 2000 INTERNATIONAL UNIT, 3/WEEK
     Route: 042
  4. HEMO?8R [Suspect]
     Active Substance: ANTIHEMOPHILIC FACTOR, HUMAN RECOMBINANT
     Dosage: 2000 UNK, 3/WEEK
     Route: 042

REACTIONS (19)
  - Coma [Recovered/Resolved]
  - Lower limb fracture [Recovering/Resolving]
  - Pain [Recovering/Resolving]
  - Hypersensitivity [Recovering/Resolving]
  - Procedural haemorrhage [Recovering/Resolving]
  - Pyrexia [Recovering/Resolving]
  - Product availability issue [Unknown]
  - Weight decreased [Recovering/Resolving]
  - Surgery [Unknown]
  - Peripheral swelling [Unknown]
  - Localised infection [Unknown]
  - Road traffic accident [Recovering/Resolving]
  - Overweight [Unknown]
  - Extra dose administered [Unknown]
  - Bedridden [Unknown]
  - Upper limb fracture [Recovering/Resolving]
  - Ligament rupture [Unknown]
  - Bone loss [Recovering/Resolving]
  - Muscle atrophy [Not Recovered/Not Resolved]

NARRATIVE: CASE EVENT DATE: 20201029
